FAERS Safety Report 9226207 (Version 1)
Quarter: 2013Q2

REPORT INFORMATION
  Report Type: Spontaneous
  Country: US (occurrence: US)
  Receive Date: 20130411
  Receipt Date: 20130411
  Transmission Date: 20140414
  Serious: Yes (Death)
  Sender: FDA-Public Use
  Company Number: GXBR2013US000865

PATIENT
  Age: 84 Year
  Sex: Male

DRUGS (1)
  1. ENOXAPARIN SODIUM [Suspect]
     Indication: VENOUS THROMBOSIS
     Dosage: 80 MG, BID
     Route: 058
     Dates: start: 20121205

REACTIONS (1)
  - Death [Fatal]
